FAERS Safety Report 19801503 (Version 10)
Quarter: 2022Q1

REPORT INFORMATION
  Report Type: Report from Study
  Country: US (occurrence: US)
  Receive Date: 20210908
  Receipt Date: 20220115
  Transmission Date: 20220423
  Serious: Yes (Other)
  Sender: FDA-Public Use
  Company Number: US-NOVARTISPH-NVSC2021US203401

PATIENT
  Sex: Female

DRUGS (3)
  1. ENTRESTO [Suspect]
     Active Substance: SACUBITRIL\VALSARTAN
     Indication: Product used for unknown indication
     Dosage: 1 DF (49/51 MG), BID
     Route: 048
  2. ENTRESTO [Suspect]
     Active Substance: SACUBITRIL\VALSARTAN
     Dosage: 1 DF, QD(49/51 MG)
     Route: 048
  3. CARVEDILOL [Suspect]
     Active Substance: CARVEDILOL
     Indication: Product used for unknown indication
     Dosage: UNK UNK, BID(12.5)
     Route: 065

REACTIONS (28)
  - Ejection fraction decreased [Unknown]
  - Chest pain [Unknown]
  - Malaise [Unknown]
  - Vomiting [Unknown]
  - Memory impairment [Unknown]
  - Visual impairment [Unknown]
  - Ocular discomfort [Unknown]
  - Vision blurred [Unknown]
  - Vertigo [Recovering/Resolving]
  - Asthenopia [Unknown]
  - Dyspnoea [Unknown]
  - Balance disorder [Unknown]
  - Pain in extremity [Unknown]
  - Oropharyngeal pain [Unknown]
  - Dysphagia [Unknown]
  - Insomnia [Unknown]
  - Discomfort [Unknown]
  - Oedema [Unknown]
  - Heart rate decreased [Unknown]
  - Back pain [Unknown]
  - Feeling abnormal [Unknown]
  - Hypertension [Unknown]
  - Headache [Unknown]
  - Dizziness [Unknown]
  - Fatigue [Unknown]
  - Depression [Unknown]
  - Inappropriate schedule of product administration [Unknown]
  - Wrong technique in product usage process [Unknown]
